FAERS Safety Report 20189267 (Version 1)
Quarter: 2021Q4

REPORT INFORMATION
  Report Type: Spontaneous
  Country: US (occurrence: US)
  Receive Date: 20211215
  Receipt Date: 20211215
  Transmission Date: 20220303
  Serious: No
  Sender: FDA-Public Use
  Company Number: US-CELGENE-USA-20211202914

PATIENT
  Sex: Male
  Weight: 145.28 kg

DRUGS (9)
  1. POMALYST [Suspect]
     Active Substance: POMALIDOMIDE
     Indication: Plasma cell myeloma
     Dosage: 2 MILLIGRAM
     Route: 048
     Dates: start: 202002
  2. ADVIL [Concomitant]
     Active Substance: IBUPROFEN
     Indication: Product used for unknown indication
     Route: 048
  3. MAGNESIUM [Concomitant]
     Active Substance: MAGNESIUM
     Indication: Product used for unknown indication
     Route: 048
  4. POTASSIUM [Concomitant]
     Active Substance: POTASSIUM
     Indication: Product used for unknown indication
     Route: 048
  5. NINLARO [Concomitant]
     Active Substance: IXAZOMIB CITRATE
     Indication: Product used for unknown indication
     Route: 048
  6. OXYCODONE HYDROCHLORIDE [Concomitant]
     Active Substance: OXYCODONE HYDROCHLORIDE
     Indication: Product used for unknown indication
     Route: 065
  7. ASPIRIN [Concomitant]
     Active Substance: ASPIRIN
     Indication: Product used for unknown indication
     Route: 065
  8. LEVOTHYROXINE [Concomitant]
     Active Substance: LEVOTHYROXINE
     Indication: Product used for unknown indication
     Route: 065
  9. CALCIUM [Concomitant]
     Active Substance: CALCIUM
     Indication: Product used for unknown indication
     Route: 065

REACTIONS (1)
  - Hypoaesthesia [Unknown]
